FAERS Safety Report 20849105 (Version 1)
Quarter: 2022Q2

REPORT INFORMATION
  Report Type: Spontaneous
  Country: US (occurrence: US)
  Receive Date: 20220519
  Receipt Date: 20220519
  Transmission Date: 20220721
  Serious: No
  Sender: FDA-Public Use
  Company Number: US-drreddys-SPO/USA/22/0149665

PATIENT
  Sex: Male

DRUGS (4)
  1. DIVALPROEX SODIUM DR [Suspect]
     Active Substance: DIVALPROEX SODIUM
     Indication: Seizure
     Dates: start: 20211113
  2. XIFAXAN [Concomitant]
     Active Substance: RIFAXIMIN
     Indication: Product used for unknown indication
  3. VITAMIN B [Concomitant]
     Active Substance: VITAMIN B
     Indication: Product used for unknown indication
  4. FOLIC ACID [Concomitant]
     Active Substance: FOLIC ACID
     Indication: Product used for unknown indication

REACTIONS (7)
  - Muscular weakness [Unknown]
  - Hepatic function abnormal [Unknown]
  - Asthenia [Unknown]
  - Erythema [Unknown]
  - Body temperature decreased [Unknown]
  - Gait disturbance [Unknown]
  - Amnesia [Unknown]
